FAERS Safety Report 8025371-9 (Version None)
Quarter: 2012Q1

REPORT INFORMATION
  Report Type: 
  Country: None (occurrence: None)
  Receive Date: 20120105
  Receipt Date: 20111230
  Transmission Date: 20120608
  Serious: Yes (Hospitalization)
  Sender: FDA-Public Use
  Company Number: IT-PFIZER INC-2012000157

PATIENT
  Age: 75 Year
  Sex: Female

DRUGS (9)
  1. ALLOPURINOL [Suspect]
     Indication: HYPERURICAEMIA
     Dosage: 150 MG, DAILY
     Route: 048
     Dates: start: 20111205, end: 20111214
  2. RABEPRAZOLE SODIUM [Concomitant]
     Dosage: 20 MG, UNK
     Route: 048
     Dates: start: 20111204
  3. ZITHROMAX [Suspect]
     Indication: PNEUMONIA
     Dosage: 500 MG, DAILY
     Route: 042
     Dates: start: 20111205, end: 20111208
  4. LASIX [Concomitant]
     Dosage: 60 MG, UNK
     Route: 042
  5. ENOXAPARIN SODIUM [Concomitant]
     Dosage: 8000 IU, UNK
     Route: 058
  6. UNASYN [Suspect]
     Indication: PNEUMONIA
     Dosage: 1.5 G, DAILY
     Route: 042
     Dates: start: 20111205, end: 20111208
  7. LORAZEPAM [Concomitant]
     Dosage: 1 MG, UNK
     Route: 048
  8. CARVEDILOL [Concomitant]
     Dosage: 3.12 MG, UNK
     Route: 048
  9. RAMIPRIL [Concomitant]
     Dosage: 2.5 MG, UNK

REACTIONS (2)
  - URTICARIA [None]
  - PRURITUS [None]
